FAERS Safety Report 6296249-6 (Version None)
Quarter: 2009Q3

REPORT INFORMATION
  Report Type: 
  Country: None (occurrence: None)
  Receive Date: 20090804
  Receipt Date: 20090731
  Transmission Date: 20100115
  Serious: No
  Sender: FDA-Public Use
  Company Number: US-B.I. PHARMACEUTICALS,INC./RIDGEFIELD-2009-BP-08218BP

PATIENT
  Sex: Female

DRUGS (8)
  1. SPIRIVA [Suspect]
     Indication: ASTHMA
     Dosage: 18 MCG
     Route: 055
     Dates: start: 20090301
  2. ACCOLATE [Concomitant]
     Indication: ASTHMA
     Dosage: 40 MG
     Route: 048
  3. ATROVENT HFA [Concomitant]
     Indication: ASTHMA
     Route: 055
  4. MAXAIR [Concomitant]
     Indication: ASTHMA
     Route: 055
  5. ADVAIR HFA [Concomitant]
     Indication: ASTHMA
     Dosage: 2 PUF
     Route: 055
  6. OXYGEN [Concomitant]
     Indication: ASTHMA
     Route: 045
  7. XOLAIR [Concomitant]
     Indication: ASTHMA
     Dates: start: 20090101
  8. VESICARE [Concomitant]
     Indication: HYPERTONIC BLADDER
     Dosage: 5 MG
     Route: 048

REACTIONS (2)
  - BLOOD GLUCOSE INCREASED [None]
  - URINARY TRACT INFECTION [None]
